FAERS Safety Report 9974374 (Version 1)
Quarter: 2014Q1

REPORT INFORMATION
  Report Type: Report from Study
  Country: US (occurrence: US)
  Receive Date: 20140306
  Receipt Date: 20140306
  Transmission Date: 20141002
  Serious: No
  Sender: FDA-Public Use
  Company Number: US-ABBVIE-13P-163-1158898-00

PATIENT
  Sex: Male
  Weight: 98.06 kg

DRUGS (3)
  1. HUMIRA [Suspect]
     Indication: PSORIASIS
     Dosage: ONE DOSE
     Dates: start: 2009, end: 2009
  2. HUMIRA [Suspect]
     Dosage: STARTED ONE WEEK AFTER INTITIAL DOSE
     Dates: start: 2009, end: 201305
  3. ZOLOFT [Concomitant]
     Indication: ANXIETY

REACTIONS (10)
  - Fatigue [Recovering/Resolving]
  - Syncope [Recovered/Resolved]
  - Anaemia [Recovered/Resolved]
  - Anaemia [Recovering/Resolving]
  - Atrial fibrillation [Recovered/Resolved]
  - Malaise [Recovered/Resolved]
  - Pharyngitis streptococcal [Recovered/Resolved]
  - Psoriasis [Not Recovered/Not Resolved]
  - Blood pressure abnormal [Recovered/Resolved]
  - Haemoglobin decreased [Recovering/Resolving]
